FAERS Safety Report 11119891 (Version 2)
Quarter: 2015Q2

REPORT INFORMATION
  Report Type: Spontaneous
  Country: US (occurrence: US)
  Receive Date: 20150518
  Receipt Date: 20150615
  Transmission Date: 20150821
  Serious: Yes (Death)
  Sender: FDA-Public Use
  Company Number: US-CELGENE-USA-2015052824

PATIENT
  Age: 65 Year
  Sex: Female

DRUGS (6)
  1. ABRAXANE [Suspect]
     Active Substance: PACLITAXEL
     Indication: BREAST CANCER METASTATIC
     Route: 041
     Dates: start: 20150217, end: 20150414
  2. MARINOL [Concomitant]
     Active Substance: DRONABINOL
     Indication: PRODUCT USED FOR UNKNOWN INDICATION
     Route: 065
     Dates: start: 20150409, end: 20150428
  3. ABRAXANE [Suspect]
     Active Substance: PACLITAXEL
     Indication: LUNG CANCER METASTATIC
  4. ROXANOL [Concomitant]
     Active Substance: MORPHINE SULFATE
     Indication: PAIN
     Dosage: 10-40MG
     Route: 065
     Dates: start: 20150427, end: 20150428
  5. COMPAZINE [Concomitant]
     Active Substance: PROCHLORPERAZINE MALEATE
     Indication: NAUSEA
     Route: 065
     Dates: start: 20150424, end: 20150428
  6. FENTANYL. [Concomitant]
     Active Substance: FENTANYL
     Indication: PAIN
     Route: 065
     Dates: start: 20150421, end: 20150423

REACTIONS (2)
  - Lung cancer metastatic [Fatal]
  - Breast cancer metastatic [Fatal]

NARRATIVE: CASE EVENT DATE: 20150428
